FAERS Safety Report 9736431 (Version 3)
Quarter: 2014Q1

REPORT INFORMATION
  Report Type: Spontaneous
  Country: JP (occurrence: JP)
  Receive Date: 20131206
  Receipt Date: 20140103
  Transmission Date: 20141002
  Serious: Yes (Hospitalization)
  Sender: FDA-Public Use
  Company Number: JP-CELGENEUS-087-21660-13120241

PATIENT
  Age: 42 Year
  Sex: Female

DRUGS (9)
  1. ABRAXANE [Suspect]
     Indication: BREAST CANCER METASTATIC
     Dosage: 400 MILLIGRAM
     Route: 041
     Dates: start: 20120620, end: 20130614
  2. ABRAXANE [Suspect]
     Route: 041
     Dates: start: 20130712
  3. ABRAXANE [Suspect]
     Route: 041
     Dates: start: 20131115, end: 20131115
  4. AVASTIN [Concomitant]
     Indication: BREAST CANCER METASTATIC
     Route: 065
     Dates: start: 20130712
  5. AVASTIN [Concomitant]
     Route: 065
     Dates: start: 20131115, end: 20131115
  6. PREDNISOLONE [Concomitant]
     Indication: PRODUCT USED FOR UNKNOWN INDICATION
     Dosage: 20 MILLIGRAM
     Route: 048
     Dates: start: 20130116
  7. DEPAKENE [Concomitant]
     Indication: PRODUCT USED FOR UNKNOWN INDICATION
     Dosage: 1200 MILLIGRAM
     Route: 048
     Dates: start: 20130116
  8. GASTER D [Concomitant]
     Indication: PRODUCT USED FOR UNKNOWN INDICATION
     Dosage: 20 MILLIGRAM
     Route: 048
     Dates: start: 20130116
  9. MAOBUSHISAISHINTO [Concomitant]
     Indication: PRODUCT USED FOR UNKNOWN INDICATION
     Dosage: 7.5 GRAM
     Route: 048
     Dates: start: 20131004

REACTIONS (3)
  - Skin erosion [Recovering/Resolving]
  - Skin ulcer [Recovering/Resolving]
  - Dermatitis acneiform [Recovering/Resolving]
